FAERS Safety Report 6312573-2 (Version None)
Quarter: 2009Q3

REPORT INFORMATION
  Report Type: 
  Country: None (occurrence: None)
  Receive Date: 20090817
  Receipt Date: 20090624
  Transmission Date: 20100115
  Serious: No
  Sender: FDA-Public Use
  Company Number: US-ALLERGAN-0908892US

PATIENT
  Age: 56 Year
  Sex: Female

DRUGS (1)
  1. SANCTURA XR [Suspect]
     Indication: MICTURITION URGENCY
     Dosage: 60 MG, QAM
     Route: 048

REACTIONS (3)
  - DRY MOUTH [None]
  - DYSPNOEA [None]
  - HEART RATE INCREASED [None]
